FAERS Safety Report 6960994-7 (Version None)
Quarter: 2010Q3

REPORT INFORMATION
  Report Type: 
  Country: None (occurrence: None)
  Receive Date: 20100901
  Receipt Date: 20100823
  Transmission Date: 20110219
  Serious: Yes (Hospitalization, Other)
  Sender: FDA-Public Use
  Company Number: US-WATSON-2010-11394

PATIENT
  Age: 40 Year
  Sex: Male

DRUGS (2)
  1. OXYCODONE HYDROCHLORIDE/APAP UNKNOWN STRENGTH + FORMULATION (WATSON) [Suspect]
     Indication: BACK PAIN
     Dosage: 2.5/325MG, 2TAB Q4-6H
     Route: 048
  2. OXYCODONE HCL [Suspect]
     Indication: BACK PAIN
     Dosage: 20 MG, BID
     Route: 048

REACTIONS (2)
  - DRUG DEPENDENCE [None]
  - HYPERAESTHESIA [None]
